FAERS Safety Report 4320293-9 (Version None)
Quarter: 2004Q1

REPORT INFORMATION
  Report Type: 
  Country: None (occurrence: None)
  Receive Date: 20040317
  Receipt Date: 20040305
  Transmission Date: 20041129
  Serious: Yes (Death)
  Sender: FDA-Public Use
  Company Number: JP-SHR-04-022102

PATIENT
  Age: 59 Year
  Sex: Female

DRUGS (3)
  1. PROSCOPE 300(IOPROMIDE) INFUSION [Suspect]
     Indication: COMPUTERISED TOMOGRAM
     Dosage: 100 ML, 1 DOSE, INTRAVENOUS
     Route: 042
     Dates: start: 20040225, end: 20040225
  2. RANDA [Concomitant]
  3. PACLITAXEL [Concomitant]

REACTIONS (5)
  - BLOOD PRESSURE DECREASED [None]
  - CONVULSION [None]
  - DRUG HYPERSENSITIVITY [None]
  - PULSE ABSENT [None]
  - RESPIRATORY FAILURE [None]
